FAERS Safety Report 18243679 (Version 2)
Quarter: 2020Q3

REPORT INFORMATION
  Report Type: Spontaneous
  Country: CN (occurrence: CN)
  Receive Date: 20200908
  Receipt Date: 20200917
  Transmission Date: 20201103
  Serious: Yes (Other)
  Sender: FDA-Public Use
  Company Number: CN-ASTRAZENECA-2020SF14002

PATIENT
  Weight: 65 kg

DRUGS (2)
  1. IMFINZI [Suspect]
     Active Substance: DURVALUMAB
     Dosage: 620MG
     Route: 042
     Dates: start: 20200401
  2. IMFINZI [Suspect]
     Active Substance: DURVALUMAB
     Dosage: 620MG / CYCLE
     Route: 042
     Dates: end: 20200429

REACTIONS (3)
  - Cough [Unknown]
  - Malignant neoplasm progression [Unknown]
  - Pneumonia [Unknown]
